FAERS Safety Report 4549459-X (Version None)
Quarter: 2005Q1

REPORT INFORMATION
  Report Type: 
  Country: None (occurrence: None)
  Receive Date: 20050110
  Receipt Date: 20050110
  Transmission Date: 20050727
  Serious: Yes (Death)
  Sender: FDA-Public Use
  Company Number: None

PATIENT
  Age: 77 Year
  Sex: Female
  Weight: 72.5755 kg

DRUGS (2)
  1. OXYCONTIN [Suspect]
     Indication: LUNG NEOPLASM MALIGNANT
     Dosage: 1 TAB  EVERY 6 HOURS   ORAL
     Route: 048
     Dates: start: 20040805, end: 20040810
  2. OXYCODONE-APAP  10-325MG   WATSON LABS [Suspect]
     Indication: CHEST PAIN
     Dosage: 1 TAB   EVERY 4 HOURS   ORAL
     Route: 048

REACTIONS (5)
  - CONFUSIONAL STATE [None]
  - GENERAL PHYSICAL HEALTH DETERIORATION [None]
  - MEDICATION ERROR [None]
  - OVERDOSE [None]
  - SOMNOLENCE [None]
